FAERS Safety Report 23615753 (Version 1)
Quarter: 2024Q1

REPORT INFORMATION
  Report Type: Spontaneous
  Country: US (occurrence: US)
  Receive Date: 20240311
  Receipt Date: 20240311
  Transmission Date: 20240410
  Serious: Yes (Death)
  Sender: FDA-Public Use
  Company Number: US-HETERO-HET2024US00626

PATIENT
  Age: 35 Year
  Sex: Female

DRUGS (1)
  1. COLCHICINE [Suspect]
     Active Substance: COLCHICINE
     Indication: Abdominal pain
     Dosage: WHOLE BOTTLE OF COLCHICINE (OVER LAST FEW DAYS))
     Route: 065

REACTIONS (4)
  - Cardiac arrest [Fatal]
  - Ventricular fibrillation [Fatal]
  - Overdose [Fatal]
  - Product use in unapproved indication [Unknown]
